FAERS Safety Report 9285976 (Version 3)
Quarter: 2013Q4

REPORT INFORMATION
  Report Type: Report from Study
  Country: HU (occurrence: HU)
  Receive Date: 20130513
  Receipt Date: 20131003
  Transmission Date: 20140711
  Serious: Yes (Death, Life-Threatening)
  Sender: FDA-Public Use
  Company Number: HU-AMGEN-HUNCT2013033068

PATIENT
  Age: 83 Year
  Sex: Female
  Weight: 73.4 kg

DRUGS (17)
  1. DENOSUMAB [Suspect]
     Indication: PLASMA CELL MYELOMA
     Dosage: 120 MG, UNK
     Route: 065
     Dates: start: 20130320, end: 20130412
  2. MELPHALAN [Concomitant]
     Dosage: UNK
     Dates: start: 20130312, end: 20130315
  3. DEXAMETHASON [Concomitant]
     Dosage: UNK
     Dates: start: 20130313, end: 20130315
  4. BORTEZOMIB [Concomitant]
     Dosage: UNK
     Dates: start: 20130312, end: 20130319
  5. ALLOPURINOL [Concomitant]
     Dosage: 100 MG, UNK
     Route: 048
     Dates: start: 20130312, end: 20130509
  6. FUROSEMID                          /00032601/ [Concomitant]
     Dosage: 20 MG, UNK
     Route: 042
     Dates: start: 201302, end: 20130303
  7. PANTOPRAZOL [Concomitant]
     Dosage: 40 MG, UNK
     Route: 048
     Dates: start: 20130305, end: 20130509
  8. ACICLOVIR [Concomitant]
     Dosage: 400 MG, UNK
     Route: 048
     Dates: start: 20130312, end: 20130509
  9. RAMIPRIL [Concomitant]
     Dosage: 2.5 MG, UNK
     Route: 048
     Dates: start: 2000, end: 20130313
  10. CITALOPRAM [Concomitant]
     Dosage: 20 MG, UNK
     Route: 048
     Dates: start: 2007, end: 20130509
  11. ALPRAZOLAM [Concomitant]
     Dosage: 0.5 MG, UNK
     Route: 048
     Dates: start: 2007, end: 20130509
  12. ROSUVASTATIN [Concomitant]
     Dosage: 20 MG, UNK
     Route: 048
     Dates: start: 2007, end: 20130509
  13. POTASSIUM CHLORIDE [Concomitant]
     Dosage: 1 G, UNK
     Route: 048
     Dates: start: 201302, end: 20130509
  14. INSULIN HUMAN [Concomitant]
     Dosage: 1 UNK, UNK
     Route: 058
     Dates: start: 20130305, end: 20130316
  15. EPOETIN ZETA [Concomitant]
     Dosage: 40000 IU, UNK
     Route: 058
     Dates: start: 20130325, end: 20130509
  16. CALCIUM CARBONATE [Concomitant]
     Dosage: 600 MG, UNK
     Route: 048
     Dates: start: 20130412, end: 20130509
  17. COLECALCIFEROL [Concomitant]
     Dosage: 400 IU, UNK
     Route: 048
     Dates: start: 20130412, end: 20130509

REACTIONS (1)
  - Death [Fatal]
